FAERS Safety Report 15638370 (Version 1)
Quarter: 2018Q4

REPORT INFORMATION
  Report Type: Spontaneous
  Country: US (occurrence: US)
  Receive Date: 20181120
  Receipt Date: 20181120
  Transmission Date: 20190205
  Serious: No
  Sender: FDA-Public Use
  Company Number: US-JNJFOC-20180839325

PATIENT
  Age: 74 Year
  Sex: Male

DRUGS (20)
  1. IMBRUVICA [Suspect]
     Active Substance: IBRUTINIB
     Indication: WALDENSTROM^S MACROGLOBULINAEMIA
     Route: 048
     Dates: start: 20180508, end: 2018
  2. ATORVASTATIN [Concomitant]
     Active Substance: ATORVASTATIN
  3. FIBERCON [Concomitant]
     Active Substance: CALCIUM POLYCARBOPHIL
  4. PLAVIX [Concomitant]
     Active Substance: CLOPIDOGREL BISULFATE
  5. DEXAMETHASONE. [Concomitant]
     Active Substance: DEXAMETHASONE
  6. PANTOPRAZOLE [Concomitant]
     Active Substance: PANTOPRAZOLE
  7. ZOLPIDEM [Concomitant]
     Active Substance: ZOLPIDEM\ZOLPIDEM TARTRATE
  8. VITAMIN D3 [Concomitant]
     Active Substance: CHOLECALCIFEROL
  9. VITAMIN D [Concomitant]
     Active Substance: CHOLECALCIFEROL
  10. IMBRUVICA [Suspect]
     Active Substance: IBRUTINIB
     Indication: WALDENSTROM^S MACROGLOBULINAEMIA
     Route: 048
     Dates: start: 2018
  11. COSOPT [Concomitant]
     Active Substance: DORZOLAMIDE HYDROCHLORIDE\TIMOLOL MALEATE
  12. ASPIRIN. [Concomitant]
     Active Substance: ASPIRIN
  13. TAMSULOSIN [Concomitant]
     Active Substance: TAMSULOSIN
  14. ZINC. [Concomitant]
     Active Substance: ZINC
  15. IMBRUVICA [Suspect]
     Active Substance: IBRUTINIB
     Indication: WALDENSTROM^S MACROGLOBULINAEMIA
     Route: 048
     Dates: start: 20180104, end: 20180507
  16. DOCUSATE [Concomitant]
     Active Substance: DOCUSATE
  17. ONDANSETRON [Concomitant]
     Active Substance: ONDANSETRON
  18. LINZESS [Concomitant]
     Active Substance: LINACLOTIDE
  19. TRAVATAN [Concomitant]
     Active Substance: TRAVOPROST
  20. FINASTERIDE. [Concomitant]
     Active Substance: FINASTERIDE

REACTIONS (4)
  - Product use issue [Unknown]
  - Blood immunoglobulin M increased [Unknown]
  - Off label use [Unknown]
  - Iron deficiency [Unknown]

NARRATIVE: CASE EVENT DATE: 20180508
